FAERS Safety Report 8904108 (Version 1)
Quarter: 2012Q4

REPORT INFORMATION
  Report Type: 
  Country: GB (occurrence: GB)
  Receive Date: 20121113
  Receipt Date: 20121113
  Transmission Date: 20130627
  Serious: Yes (Other)
  Sender: FDA-Public Use
  Company Number: PHHY2012GB103353

PATIENT
  Age: 44 Year
  Sex: Female

DRUGS (5)
  1. HYDRALAZINE [Suspect]
     Indication: HYPERTENSION
  2. METOPROLOL [Suspect]
     Indication: HYPERTENSION
     Dosage: UNK
  3. RAMIPRIL [Concomitant]
     Indication: HYPERTENSION
  4. DRUGS FOR TREATMENT OF HYPOGLYCEMIA [Concomitant]
  5. PHENOXYBENZAMINE [Concomitant]
     Route: 048

REACTIONS (5)
  - Tachycardia [Recovered/Resolved]
  - Acute pulmonary oedema [Unknown]
  - Ejection fraction decreased [Unknown]
  - Norepinephrine increased [Unknown]
  - Epinephrine increased [Unknown]
